FAERS Safety Report 7454880-6 (Version None)
Quarter: 2011Q1

REPORT INFORMATION
  Report Type: 
  Country: None (occurrence: None)
  Receive Date: 20110302
  Receipt Date: 20110111
  Transmission Date: 20110831
  Serious: No
  Sender: FDA-Public Use
  Company Number: 025199

PATIENT
  Sex: Female

DRUGS (1)
  1. CIMZIA [Suspect]
     Dosage: (400 MG 1X/4 WEEKS SUBCUTANEOUS)
     Route: 058
     Dates: start: 20101001

REACTIONS (4)
  - PAIN [None]
  - MUSCULOSKELETAL STIFFNESS [None]
  - PRURITUS GENERALISED [None]
  - SKIN DISCOLOURATION [None]
